FAERS Safety Report 26120279 (Version 1)
Quarter: 2025Q4

REPORT INFORMATION
  Report Type: Spontaneous
  Country: EU (occurrence: EU)
  Receive Date: 20251204
  Receipt Date: 20251204
  Transmission Date: 20260117
  Serious: Yes (Life-Threatening, Hospitalization, Other)
  Sender: AUROBINDO
  Company Number: EU-AEMPS-1777393

PATIENT
  Age: 33 Year
  Sex: Female

DRUGS (5)
  1. LORAZEPAM [Suspect]
     Active Substance: LORAZEPAM
     Indication: Product used for unknown indication
     Dosage: 65 MILLIGRAM, 1 X TOTAL
     Dates: start: 20250918, end: 20250918
  2. BILASTINE [Suspect]
     Active Substance: BILASTINE
     Indication: Product used for unknown indication
     Dosage: 1200 MILLIGRAM, 1 X TOTAL
     Dates: start: 20250918, end: 20250918
  3. LAMOTRIGINE [Suspect]
     Active Substance: LAMOTRIGINE
     Indication: Product used for unknown indication
     Dosage: 1120 MILLIGRAM, 1 X TOTAL
     Dates: start: 20250918, end: 20250918
  4. LORMETAZEPAM [Suspect]
     Active Substance: LORMETAZEPAM
     Indication: Product used for unknown indication
     Dosage: 80 MILLIGRAM, 1 X TOTAL
     Dates: start: 20250918, end: 20250918
  5. CLOTHIAPINE [Suspect]
     Active Substance: CLOTHIAPINE
     Indication: Product used for unknown indication
     Dosage: 1200 MILLIGRAM, 1 X TOTAL
     Dates: start: 20250918, end: 20250918

REACTIONS (3)
  - Lactic acidosis [Recovered/Resolved]
  - Coma [Recovered/Resolved]
  - Intentional overdose [Recovered/Resolved]

NARRATIVE: CASE EVENT DATE: 20250918
